FAERS Safety Report 5501339-9 (Version None)
Quarter: 2007Q4

REPORT INFORMATION
  Report Type: 
  Country: None (occurrence: None)
  Receive Date: 20071026
  Receipt Date: 20071022
  Transmission Date: 20080405
  Serious: Yes (Life-Threatening)
  Sender: FDA-Public Use
  Company Number: 2007SP014099

PATIENT
  Age: 39 Year
  Sex: Female
  Weight: 60.782 kg

DRUGS (5)
  1. ASMANEX TWISTHALER [Suspect]
     Indication: ASTHMA
     Dosage: 1 DF;ONCE;PO
     Route: 048
     Dates: start: 20070705, end: 20070705
  2. ELMIRON (CON.) [Concomitant]
  3. PROTONIX (CON.) [Concomitant]
  4. XOPENEX (CON.) [Concomitant]
  5. RHINOCORT (CON.) [Concomitant]

REACTIONS (9)
  - BRONCHOSPASM [None]
  - CHEST DISCOMFORT [None]
  - DYSPNOEA [None]
  - ERYTHEMA [None]
  - FEELING HOT [None]
  - FLUSHING [None]
  - HYPERHIDROSIS [None]
  - PALPITATIONS [None]
  - WHEEZING [None]
